FAERS Safety Report 18746158 (Version 1)
Quarter: 2021Q1

REPORT INFORMATION
  Report Type: Spontaneous
  Country: CA (occurrence: CA)
  Receive Date: 20210115
  Receipt Date: 20210115
  Transmission Date: 20210419
  Serious: Yes (Other)
  Sender: FDA-Public Use
  Company Number: CA-PFIZER INC-2020080104

PATIENT
  Age: 84 Year
  Sex: Male
  Weight: 87 kg

DRUGS (3)
  1. SUTENT [Suspect]
     Active Substance: SUNITINIB MALATE
     Indication: GASTROINTESTINAL STROMAL TUMOUR
     Dosage: 37.5 MG, CYCLIC (4 WEEKS ON, THEN OFF FOR 2 WEEKS)
     Route: 048
     Dates: start: 20200224, end: 2020
  2. VITAMIN D [VITAMIN D NOS] [Concomitant]
     Active Substance: VITAMIN D NOS
     Dosage: 400 IU, DAILY
  3. SUTENT [Suspect]
     Active Substance: SUNITINIB MALATE
     Dosage: 25 MG, CYCLIC [TAKE 1 CAPSULE (25MG) BY MOUTH ONCE DAILY FOR 4 WEEKS, THEN OFF FOR 2 WEEKS]
     Route: 048
     Dates: start: 2020, end: 2020

REACTIONS (9)
  - Flatulence [Not Recovered/Not Resolved]
  - Dysgeusia [Not Recovered/Not Resolved]
  - Taste disorder [Recovering/Resolving]
  - Vomiting [Unknown]
  - Cerebrovascular accident [Unknown]
  - Abdominal distension [Not Recovered/Not Resolved]
  - Eructation [Unknown]
  - Euphoric mood [Unknown]
  - Neoplasm progression [Unknown]

NARRATIVE: CASE EVENT DATE: 2020
